FAERS Safety Report 5269460-0 (Version None)
Quarter: 2007Q1

REPORT INFORMATION
  Report Type: 
  Country: None (occurrence: None)
  Receive Date: 20070314
  Receipt Date: 20070310
  Transmission Date: 20070707
  Serious: Yes (Disabling)
  Sender: FDA-Public Use
  Company Number: 231911

PATIENT
  Age: 56 Year
  Sex: Male
  Weight: 48 kg

DRUGS (7)
  1. RITUXAN (RITUXIMAB) CON FOR SOLUTION FOR INFUSION [Suspect]
     Indication: NON-HODGKIN'S LYMPHOMA
     Dosage: SEE IMAGE
     Route: 042
     Dates: start: 20050711, end: 20060817
  2. RITUXAN (RITUXIMAB) CON FOR SOLUTION FOR INFUSION [Suspect]
     Indication: NON-HODGKIN'S LYMPHOMA
     Dosage: SEE IMAGE
     Route: 042
     Dates: start: 20060306
  3. CYCLOPHOSPHAMIDE [Concomitant]
  4. DOXORUBICIN HCL [Concomitant]
  5. VINCRISTINE [Concomitant]
  6. PREDNISOLONE [Concomitant]
  7. ETOPOSIDE [Concomitant]

REACTIONS (4)
  - FEMORAL NECK FRACTURE [None]
  - LUMBAR VERTEBRAL FRACTURE [None]
  - RED BLOOD CELL COUNT DECREASED [None]
  - WHITE BLOOD CELL COUNT DECREASED [None]
